FAERS Safety Report 8822477 (Version 3)
Quarter: 2012Q4

REPORT INFORMATION
  Report Type: 
  Country: JP (occurrence: JP)
  Receive Date: 20121003
  Receipt Date: 20121023
  Transmission Date: 20130627
  Serious: Yes (Hospitalization)
  Sender: FDA-Public Use
  Company Number: JP-JNJFOC-20120906614

PATIENT
  Age: 86 Year
  Sex: Male
  Weight: 46 kg

DRUGS (12)
  1. REMINYL [Suspect]
     Indication: DEMENTIA ALZHEIMER^S TYPE
     Route: 048
     Dates: start: 20120810, end: 20120828
  2. STEROIDS NOS [Suspect]
     Indication: PEMPHIGOID
     Route: 065
  3. FLUITRAN [Concomitant]
     Indication: POLYURIA
     Route: 048
     Dates: start: 20110610
  4. HARNAL [Concomitant]
     Indication: BENIGN PROSTATIC HYPERPLASIA
     Route: 048
     Dates: start: 20090223
  5. THYRADIN [Concomitant]
     Indication: HYPOTHYROIDISM
     Route: 048
     Dates: start: 20090223
  6. METHYCOBAL [Concomitant]
     Indication: PRODUCT USED FOR UNKNOWN INDICATION
     Route: 048
     Dates: start: 20090223
  7. NITOROL R [Concomitant]
     Indication: HYPERTENSION
     Route: 048
     Dates: start: 20090223
  8. ONON [Concomitant]
     Indication: ASTHMA
     Route: 048
     Dates: start: 20090223
  9. OMEPRAL [Concomitant]
     Indication: GASTRIC ULCER
     Route: 048
     Dates: start: 20090223
  10. MYSLEE [Concomitant]
     Indication: INSOMNIA
     Route: 048
     Dates: start: 20090223
  11. DESYREL [Concomitant]
     Indication: INSOMNIA
     Route: 048
     Dates: start: 20090223
  12. THEODUR [Concomitant]
     Indication: ASTHMA
     Route: 048
     Dates: start: 20090223

REACTIONS (2)
  - Drug eruption [Recovered/Resolved]
  - Rectal tenesmus [Recovered/Resolved]
